FAERS Safety Report 5976779-4 (Version None)
Quarter: 2008Q4

REPORT INFORMATION
  Report Type: 
  Country: None (occurrence: None)
  Receive Date: 20081203
  Receipt Date: 20080917
  Transmission Date: 20090506
  Serious: No
  Sender: FDA-Public Use
  Company Number: US-AMGEN-KDL308110

PATIENT
  Sex: Male
  Weight: 74.9 kg

DRUGS (2)
  1. ENBREL [Suspect]
     Indication: PSORIATIC ARTHROPATHY
     Route: 058
     Dates: start: 20080516, end: 20080806
  2. ENBREL [Suspect]
     Indication: PSORIASIS

REACTIONS (5)
  - GALLBLADDER DISORDER [None]
  - JOINT SWELLING [None]
  - LIMB INJURY [None]
  - LIPASE INCREASED [None]
  - MALAISE [None]
